FAERS Safety Report 8530300-5 (Version None)
Quarter: 2012Q3

REPORT INFORMATION
  Report Type: 
  Country: None (occurrence: None)
  Receive Date: 20120723
  Receipt Date: 20120713
  Transmission Date: 20120928
  Serious: Yes (Hospitalization, Other)
  Sender: FDA-Public Use
  Company Number: US-BAYER-2012-000103

PATIENT
  Age: 48 Year
  Sex: Female
  Weight: 54.422 kg

DRUGS (8)
  1. METOPROLOL SUCCINATE [Concomitant]
     Dosage: 50 MG, UNK
     Route: 048
  2. ALPRAZOLAM [Concomitant]
     Dosage: 0.5 MG, UNK
     Route: 048
  3. VERAPAMIL [Concomitant]
     Dosage: 240 MG, UNK
     Route: 048
  4. ZOLPIDEM TARTRATE [Concomitant]
     Dosage: 10 MG, UNK
     Route: 048
  5. YAZ [Suspect]
     Indication: CONTRACEPTION
     Dates: start: 20060831, end: 20090824
  6. CYMBALTA [Concomitant]
     Dosage: 30 MG, UNK
     Route: 048
  7. LYRICA [Concomitant]
     Dosage: 150 MG, UNK
     Route: 048
  8. PROVIGIL [Concomitant]
     Dosage: 200 MG, UNK
     Route: 048

REACTIONS (6)
  - VISION BLURRED [None]
  - TRANSIENT ISCHAEMIC ATTACK [None]
  - FIBROMYALGIA [None]
  - MIGRAINE WITH AURA [None]
  - PARESIS [None]
  - CEREBROVASCULAR ACCIDENT [None]
